FAERS Safety Report 7677004-9 (Version None)
Quarter: 2011Q3

REPORT INFORMATION
  Report Type: 
  Country: None (occurrence: None)
  Receive Date: 20110811
  Receipt Date: 20110803
  Transmission Date: 20111222
  Serious: Yes (Other)
  Sender: FDA-Public Use
  Company Number: DE-NOVOPROD-324474

PATIENT

DRUGS (5)
  1. TESTOSTERONE [Concomitant]
     Indication: HYPOPITUITARISM
     Dosage: 50 MG, QD
     Dates: start: 20070504
  2. RAMIPRIL [Concomitant]
     Indication: HYPERTENSION
     Dosage: 5 MG, QD
     Route: 048
     Dates: start: 20100701
  3. NORDITROPIN [Suspect]
     Indication: DEFICIENCY ANAEMIA
     Dosage: 0.25 UG, QD
     Route: 058
     Dates: start: 20091217, end: 20110120
  4. HYDROCORTISON                      /00028601/ [Concomitant]
     Indication: HYPOPITUITARISM
     Dosage: 25 MG, QD
     Route: 048
     Dates: start: 20070504
  5. LEVOTHYROXINE SODIUM [Concomitant]
     Indication: HYPOPITUITARISM
     Dosage: 75 UG, QD
     Route: 048
     Dates: start: 20110504

REACTIONS (1)
  - NEOPLASM MALIGNANT [None]
